FAERS Safety Report 9411325 (Version 4)
Quarter: 2013Q3

REPORT INFORMATION
  Report Type: Report from Study
  Country: DE (occurrence: DE)
  Receive Date: 20130722
  Receipt Date: 20130822
  Transmission Date: 20140515
  Serious: Yes (Other)
  Sender: FDA-Public Use
  Company Number: PHHY2012DE128797

PATIENT
  Sex: Male

DRUGS (5)
  1. ICL670A [Suspect]
     Indication: MYELODYSPLASTIC SYNDROME
     Dosage: 1000 MG, DAILY
     Dates: start: 20120908, end: 20120919
  2. ICL670A [Suspect]
     Dosage: 1500 MG, DAILY
     Dates: start: 20120920, end: 20121106
  3. ICL670A [Suspect]
     Dosage: 1000 MG, DAILY
     Dates: start: 20121107, end: 20121217
  4. ICL670A [Suspect]
     Dosage: 1000 MG, UNK
     Dates: start: 20130219
  5. VIDAZA [Concomitant]
     Dosage: 150 MG, (75MG/M2) DAILY ON DAY 1 TO 7
     Route: 058
     Dates: start: 20120801, end: 20130212

REACTIONS (2)
  - Blood creatinine increased [Recovered/Resolved]
  - Creatinine renal clearance decreased [Unknown]
